FAERS Safety Report 6377081-1 (Version None)
Quarter: 2009Q3

REPORT INFORMATION
  Report Type: 
  Country: None (occurrence: None)
  Receive Date: 20090925
  Receipt Date: 20090915
  Transmission Date: 20100115
  Serious: Yes (Other)
  Sender: FDA-Public Use
  Company Number: US-SOLVAY-00209005491

PATIENT
  Age: 5 Year
  Sex: Male
  Weight: 42.1 kg

DRUGS (2)
  1. ANDROGEL [Suspect]
     Indication: ACCIDENTAL EXPOSURE
     Dosage: DAILY DOSE: 5 GRAM(S)
     Route: 062
     Dates: start: 20060901
  2. ANDROGEL [Suspect]
     Dosage: DAILY DOSE: 10 GRAM(S)
     Route: 062
     Dates: end: 20070320

REACTIONS (12)
  - AGGRESSION [None]
  - BLOOD PRESSURE SYSTOLIC DECREASED [None]
  - CHILDHOOD DISINTEGRATIVE DISORDER [None]
  - EPIDIDYMAL CYST [None]
  - OBESITY [None]
  - PATERNAL DRUGS AFFECTING FOETUS [None]
  - PRECOCIOUS PUBERTY [None]
  - RASH [None]
  - SEXUAL DYSFUNCTION [None]
  - SPEECH DISORDER DEVELOPMENTAL [None]
  - TESTICULAR NEOPLASM [None]
  - VARICOCELE [None]
